FAERS Safety Report 9369527 (Version 1)
Quarter: 2013Q2

REPORT INFORMATION
  Report Type: Spontaneous
  Country: FR (occurrence: FR)
  Receive Date: 20130626
  Receipt Date: 20130626
  Transmission Date: 20140414
  Serious: Yes (Hospitalization)
  Sender: FDA-Public Use
  Company Number: FR-B.I. PHARMACEUTICALS,INC./RIDGEFIELD-2013-FF-01597FF

PATIENT
  Age: 70 Year
  Sex: Male

DRUGS (7)
  1. PRADAXA [Suspect]
     Indication: ATRIAL FIBRILLATION
     Dosage: 300 MG
     Route: 048
     Dates: start: 201205
  2. MONOTILDIEM [Concomitant]
  3. CORGARD [Concomitant]
  4. HEMIGOXINE [Concomitant]
  5. KARDEGIC [Concomitant]
  6. PRAVASTATINE [Concomitant]
  7. LEVOTHYROX [Concomitant]

REACTIONS (1)
  - Myocardial infarction [Recovered/Resolved with Sequelae]
